FAERS Safety Report 6449812-3 (Version None)
Quarter: 2009Q4

REPORT INFORMATION
  Report Type: 
  Country: None (occurrence: None)
  Receive Date: 20091120
  Receipt Date: 20090317
  Transmission Date: 20100525
  Serious: Yes (Hospitalization)
  Sender: FDA-Public Use
  Company Number: US-AMGEN-QUU334469

PATIENT
  Sex: Male

DRUGS (1)
  1. ENBREL [Suspect]
     Indication: PSORIASIS
     Route: 058
     Dates: start: 20060201

REACTIONS (7)
  - DENTAL DISCOMFORT [None]
  - MALE SEXUAL DYSFUNCTION [None]
  - PROCEDURAL PAIN [None]
  - PROSTATE CANCER [None]
  - PSORIASIS [None]
  - TOOTH EXTRACTION [None]
  - TOOTH IMPACTED [None]
